FAERS Safety Report 5131148-4 (Version None)
Quarter: 2006Q3

REPORT INFORMATION
  Report Type: 
  Country: None (occurrence: None)
  Receive Date: 20060830
  Receipt Date: 20060517
  Transmission Date: 20061208
  Serious: Yes (Other)
  Sender: FDA-Public Use
  Company Number: 200611650BWH

PATIENT
  Age: 72 Year
  Sex: Male

DRUGS (3)
  1. TRASYLOL [Suspect]
     Indication: CORONARY ARTERY BYPASS
     Dates: start: 20060201
  2. TRASYLOL [Suspect]
     Indication: COX-MAZE PROCEDURE
     Dates: start: 20060201
  3. TRASYLOL [Suspect]
     Indication: MITRAL VALVE REPLACEMENT
     Dates: start: 20060201

REACTIONS (1)
  - RENAL FAILURE [None]
